FAERS Safety Report 5453481-9 (Version None)
Quarter: 2007Q3

REPORT INFORMATION
  Report Type: 
  Country: None (occurrence: None)
  Receive Date: 20070913
  Receipt Date: 20070824
  Transmission Date: 20080115
  Serious: Yes (Hospitalization)
  Sender: FDA-Public Use
  Company Number: 2007US002029

PATIENT
  Age: 49 Year
  Sex: Female
  Weight: 55.8 kg

DRUGS (1)
  1. AMEVIVE [Suspect]
     Indication: PSORIASIS
     Dosage: IV NOS
     Route: 042
     Dates: start: 20030904

REACTIONS (1)
  - NEOPLASM MALIGNANT [None]
